FAERS Safety Report 12089638 (Version 3)
Quarter: 2016Q2

REPORT INFORMATION
  Report Type: Report from Study
  Country: DO (occurrence: DO)
  Receive Date: 20160218
  Receipt Date: 20160427
  Transmission Date: 20160815
  Serious: Yes (Death, Hospitalization)
  Sender: FDA-Public Use
  Company Number: PHHY2016DO021165

PATIENT
  Age: 8 Year
  Sex: Male
  Weight: 23.5 kg

DRUGS (3)
  1. EXJADE [Suspect]
     Active Substance: DEFERASIROX
     Indication: SICKLE CELL ANAEMIA
     Dosage: 0.75 DF, QD (3/4 TABLET EVERY 24 HOURS)
     Route: 048
     Dates: start: 201501, end: 201507
  2. HYDROXYUREA. [Concomitant]
     Active Substance: HYDROXYUREA
     Indication: PRODUCT USED FOR UNKNOWN INDICATION
     Dosage: 500 MG, QD (FROM MONDAY TO THURSDAY)
     Route: 048
  3. FOLIC ACID. [Concomitant]
     Active Substance: FOLIC ACID
     Indication: PRODUCT USED FOR UNKNOWN INDICATION
     Dosage: 5 MG, QD
     Route: 048

REACTIONS (8)
  - Wrong technique in product usage process [Unknown]
  - Bacteraemia [Unknown]
  - Pleural effusion [Unknown]
  - General physical health deterioration [Unknown]
  - Death [Fatal]
  - Chest pain [Unknown]
  - Cardio-respiratory arrest [Unknown]
  - Pyrexia [Unknown]

NARRATIVE: CASE EVENT DATE: 20150717
